FAERS Safety Report 7600543-3 (Version None)
Quarter: 2011Q2

REPORT INFORMATION
  Report Type: 
  Country: None (occurrence: None)
  Receive Date: 20110629
  Receipt Date: 20110616
  Transmission Date: 20111010
  Serious: Yes (Other)
  Sender: FDA-Public Use
  Company Number: 2011MA007660

PATIENT
  Age: 62 Year
  Sex: Male

DRUGS (5)
  1. MONONITRATE [Concomitant]
  2. ATORVASTATIN [Concomitant]
  3. DILTIAZEM HCL [Suspect]
     Indication: OVERDOSE
     Dosage: 2.5 GM, 1X
  4. ASPIRIN [Concomitant]
  5. ISOSORBIDE DINITRATE [Concomitant]

REACTIONS (8)
  - INTENTIONAL OVERDOSE [None]
  - VOMITING [None]
  - HYPOTENSION [None]
  - RENAL FAILURE ACUTE [None]
  - VISION BLURRED [None]
  - GAIT DISTURBANCE [None]
  - ACIDOSIS [None]
  - OXYGEN SATURATION DECREASED [None]
